FAERS Safety Report 5508118-7 (Version None)
Quarter: 2007Q4

REPORT INFORMATION
  Report Type: 
  Country: None (occurrence: None)
  Receive Date: 20071106
  Receipt Date: 20071025
  Transmission Date: 20080405
  Serious: Yes (Hospitalization, Other)
  Sender: FDA-Public Use
  Company Number: US-ASTRAZENECA-2007UW01935

PATIENT
  Age: 10444 Day
  Sex: Female
  Weight: 70.5 kg

DRUGS (45)
  1. SEROQUEL [Suspect]
     Indication: SCHIZOAFFECTIVE DISORDER
     Dosage: 100 MG TO 300 MG
     Route: 048
     Dates: start: 20030814, end: 20060712
  2. SEROQUEL [Suspect]
     Route: 048
     Dates: start: 20031201, end: 20040401
  3. SEROQUEL [Suspect]
     Route: 048
     Dates: start: 20040401, end: 20060701
  4. RISPERDAL [Concomitant]
     Dates: start: 19990705
  5. RISPERDAL [Concomitant]
     Dates: start: 20000619
  6. RISPERDAL [Concomitant]
     Dates: start: 20061018
  7. ABILIFY [Concomitant]
     Dates: start: 20030606
  8. ABILIFY [Concomitant]
     Dates: start: 20050902
  9. ACCUPRIL [Concomitant]
     Dates: start: 20010117
  10. AVANDIA [Concomitant]
     Dates: start: 20010515, end: 20060914
  11. BIAXIN [Concomitant]
     Dates: start: 20040112
  12. CLOTIMAZOLE [Concomitant]
     Dates: start: 20041104
  13. GLUCOPHAGE [Concomitant]
     Dates: start: 20001211
  14. GLUCOTROL XL [Concomitant]
     Dates: start: 20010307
  15. GLYBURIDE [Concomitant]
     Dates: start: 20001110, end: 20001211
  16. GLIPIZIDE [Concomitant]
     Dates: start: 20031016
  17. INSULIN [Concomitant]
  18. LIPITOR [Concomitant]
     Dates: start: 20060405
  19. LAMICTAL [Concomitant]
  20. LORAZEPAM [Concomitant]
     Dates: start: 19990705
  21. MEDROXYPROGESTERONE [Concomitant]
  22. NAPROXEN [Concomitant]
     Dates: start: 20030516
  23. NOVOLOG [Concomitant]
     Dates: start: 20041104
  24. PROMETHAZINE [Concomitant]
  25. PAXIL [Concomitant]
     Dates: start: 19990705
  26. PAXIL [Concomitant]
     Dates: start: 20030604
  27. PAXIL [Concomitant]
     Dates: start: 20030814
  28. PAXIL [Concomitant]
     Dates: start: 20030913
  29. PROZAC [Concomitant]
  30. NEOMYCIN [Concomitant]
     Dates: start: 20050203
  31. PAROXETINE [Concomitant]
     Dates: start: 20050408
  32. ASPIRIN [Concomitant]
     Dates: start: 20050526
  33. LESCOL [Concomitant]
     Dates: start: 20051006
  34. KETOCONAZOLE [Concomitant]
     Dates: start: 20040403
  35. HUMULIN R [Concomitant]
     Dates: start: 20060605
  36. FLUOXETINE [Concomitant]
     Dates: start: 20060125
  37. PREVACID [Concomitant]
     Dates: start: 20060330
  38. ECONAZOLE NITRATE [Concomitant]
     Dates: start: 20060530
  39. BETAMETHASONE [Concomitant]
     Dates: start: 20060613
  40. CIPROFLOXACIN [Concomitant]
     Dates: start: 20060714
  41. DEPAKOTE [Concomitant]
     Dates: start: 20060723
  42. PRILOSEC [Concomitant]
     Dates: start: 20060815
  43. LYRICA [Concomitant]
     Dates: start: 20060914
  44. METOPROLOL [Concomitant]
     Dates: start: 20061016
  45. VYTORIN [Concomitant]
     Dates: start: 20061016

REACTIONS (22)
  - ARTHRITIS [None]
  - BLOOD ALKALINE PHOSPHATASE INCREASED [None]
  - BLOOD CHOLESTEROL INCREASED [None]
  - CEREBROVASCULAR ACCIDENT [None]
  - CONVULSION [None]
  - DIABETES MELLITUS INADEQUATE CONTROL [None]
  - DIABETIC COMPLICATION [None]
  - DIABETIC NEUROPATHY [None]
  - DYSPNOEA [None]
  - HAEMATOCHEZIA [None]
  - HYPERCALCAEMIA [None]
  - HYPERLIPIDAEMIA [None]
  - HYPERTENSION [None]
  - HYPOCALCAEMIA [None]
  - MENSTRUAL DISORDER [None]
  - OSTEOPOROSIS [None]
  - PALPITATIONS [None]
  - RASH GENERALISED [None]
  - SINUSITIS [None]
  - TACHYCARDIA [None]
  - TRANSIENT ISCHAEMIC ATTACK [None]
  - TYPE 2 DIABETES MELLITUS [None]
